FAERS Safety Report 9275150 (Version 1)
Quarter: 2013Q2

REPORT INFORMATION
  Report Type: Spontaneous
  Country: FR (occurrence: FR)
  Receive Date: 20130507
  Receipt Date: 20130507
  Transmission Date: 20140414
  Serious: Yes (Hospitalization)
  Sender: FDA-Public Use
  Company Number: FR-PFIZER INC-2013137872

PATIENT
  Age: 51 Year
  Sex: Male

DRUGS (6)
  1. ADVIL [Suspect]
     Indication: TONSILLITIS
     Dosage: UNK
     Route: 048
     Dates: start: 20130304, end: 20130309
  2. COAPROVEL [Concomitant]
     Dosage: 1 DF, 1X/DAY (150/12.5 MG)
  3. VENLAFAXINE [Concomitant]
     Dosage: 75 MG, 2X/DAY
  4. HALDOL [Concomitant]
     Dosage: 2.5 MG, 1X/DAY
  5. LEPTICUR [Concomitant]
     Dosage: 10 MG, 1X/DAY
  6. TERCIAN [Concomitant]
     Dosage: 100 MG, 1X/DAY

REACTIONS (1)
  - Cellulitis [Recovering/Resolving]
